FAERS Safety Report 9350394 (Version 1)
Quarter: 2013Q2

REPORT INFORMATION
  Report Type: Spontaneous
  Country: US (occurrence: None)
  Receive Date: 20130613
  Receipt Date: 20130613
  Transmission Date: 20140414
  Serious: Yes (Life-Threatening)
  Sender: FDA-Public Use
  Company Number: None

PATIENT
  Age: 89 Year
  Sex: Male
  Weight: 58.2 kg

DRUGS (1)
  1. DAPTOMYCIN [Suspect]
     Indication: URINARY TRACT INFECTION
     Dosage: 350 MG EVERY DAY IV
     Route: 042
     Dates: start: 20130505, end: 20130506

REACTIONS (2)
  - Leukopenia [None]
  - Neutropenia [None]
